FAERS Safety Report 8628405 (Version 2)
Quarter: 2012Q4

REPORT INFORMATION
  Report Type: 
  Country: US (occurrence: US)
  Receive Date: 20120621
  Receipt Date: 20120906
  Transmission Date: 20130627
  Serious: Yes (Other)
  Sender: FDA-Public Use
  Company Number: PHEH2012US003838

PATIENT
  Age: 53 Year
  Sex: Female
  Weight: 60.55 kg

DRUGS (11)
  1. GILENYA [Suspect]
     Indication: MULTIPLE SCLEROSIS
     Dosage: 1 DF, QD
     Route: 048
     Dates: start: 20111031
  2. GILENYA [Suspect]
     Dosage: 2 DF, QD
     Route: 048
     Dates: start: 20120315
  3. GILENYA [Suspect]
     Dosage: 1 DF, QD
     Route: 048
     Dates: end: 20120613
  4. BACLOFEN [Concomitant]
     Indication: MUSCLE SPASMS
     Dosage: 10 mg, TID
     Route: 048
     Dates: start: 2005
  5. FOLIC ACID [Concomitant]
     Indication: HYPOVITAMINOSIS
     Dosage: 1 mg, daily
     Route: 048
     Dates: start: 2010
  6. VITAMIN D [Concomitant]
     Indication: HYPOVITAMINOSIS
     Dosage: 50000 IU,once a week
     Route: 048
     Dates: start: 2010
  7. IBUPROFEN [Concomitant]
     Dosage: 2 DF, TIDwhen she takes Avonex injection
     Route: 048
  8. LOVAZA [Concomitant]
     Dosage: 1 g, TID
     Route: 048
     Dates: start: 2009
  9. AMITRIPTYLINE [Concomitant]
     Dosage: 1 DF, QHS
     Route: 048
  10. FAMPRIDINE [Concomitant]
     Indication: GAIT DISTURBANCE
     Dosage: 1 DF, every 12 hours
     Route: 048
     Dates: start: 2010
  11. NIACIN [Concomitant]
     Dosage: 1 DF, QD
     Route: 048

REACTIONS (9)
  - Renal impairment [Not Recovered/Not Resolved]
  - Liver function test abnormal [Not Recovered/Not Resolved]
  - Blood alkaline phosphatase increased [Unknown]
  - Alanine aminotransferase increased [Unknown]
  - Aspartate aminotransferase increased [Unknown]
  - Neutrophil count increased [Unknown]
  - Monocyte count increased [Unknown]
  - Lymphocyte count decreased [Unknown]
  - White blood cell count decreased [Not Recovered/Not Resolved]
